FAERS Safety Report 10070410 (Version 1)
Quarter: 2014Q2

REPORT INFORMATION
  Report Type: Spontaneous
  Country: US (occurrence: None)
  Receive Date: 20140409
  Receipt Date: 20140409
  Transmission Date: 20141212
  Serious: Yes (Hospitalization)
  Sender: FDA-Public Use
  Company Number: None

PATIENT
  Age: 71 Year
  Sex: Male
  Weight: 85.5 kg

DRUGS (1)
  1. PACLITAXEL [Suspect]
     Indication: LUNG NEOPLASM MALIGNANT
     Route: 042
     Dates: start: 20131101, end: 20131101

REACTIONS (6)
  - Syncope [None]
  - Respiratory distress [None]
  - Hypoxia [None]
  - Hypotension [None]
  - Tachycardia [None]
  - Urinary incontinence [None]
